FAERS Safety Report 7814150-0 (Version None)
Quarter: 2011Q4

REPORT INFORMATION
  Report Type: 
  Country: None (occurrence: None)
  Receive Date: 20111014
  Receipt Date: 20111005
  Transmission Date: 20120403
  Serious: Yes (Other)
  Sender: FDA-Public Use
  Company Number: US-US-EMD SERONO, INC.-7086967

PATIENT
  Sex: Female
  Weight: 86 kg

DRUGS (1)
  1. REBIF [Suspect]
     Indication: MULTIPLE SCLEROSIS
     Dates: start: 20091116

REACTIONS (6)
  - CHOLELITHIASIS [None]
  - PRURITUS [None]
  - WEIGHT DECREASED [None]
  - MUSCULAR WEAKNESS [None]
  - VISION BLURRED [None]
  - DIPLOPIA [None]
